FAERS Safety Report 5299237-1 (Version None)
Quarter: 2007Q2

REPORT INFORMATION
  Report Type: 
  Country: None (occurrence: None)
  Receive Date: 20070411
  Receipt Date: 20070411
  Transmission Date: 20071010
  Serious: Yes (Disabling, Other)
  Sender: FDA-Public Use
  Company Number: None

PATIENT
  Age: 80 Year
  Sex: Male
  Weight: 73.0291 kg

DRUGS (5)
  1. LYRICA [Suspect]
     Indication: GOUT
     Dosage: 1-75 MG Q DAY; 75 MG 2 Q DAY
     Dates: start: 20060728
  2. LYRICA [Suspect]
     Indication: NEURALGIA
     Dosage: 1-75 MG Q DAY; 75 MG 2 Q DAY
     Dates: start: 20060728
  3. LYRICA [Suspect]
     Indication: GOUT
     Dosage: 1-75 MG Q DAY; 75 MG 2 Q DAY
     Dates: start: 20060824
  4. LYRICA [Suspect]
     Indication: NEURALGIA
     Dosage: 1-75 MG Q DAY; 75 MG 2 Q DAY
     Dates: start: 20060824
  5. . [Concomitant]

REACTIONS (10)
  - ABASIA [None]
  - ARTHRALGIA [None]
  - ARTHRITIS INFECTIVE [None]
  - DYSARTHRIA [None]
  - EYE PAIN [None]
  - JOINT SWELLING [None]
  - MUSCULAR WEAKNESS [None]
  - OEDEMA PERIPHERAL [None]
  - SWELLING FACE [None]
  - VISION BLURRED [None]
